FAERS Safety Report 5490680-4 (Version None)
Quarter: 2007Q4

REPORT INFORMATION
  Report Type: 
  Country: None (occurrence: None)
  Receive Date: 20071019
  Receipt Date: 20071017
  Transmission Date: 20080405
  Serious: Yes (Life-Threatening, Hospitalization)
  Sender: FDA-Public Use
  Company Number: DE-BAYER-200710816BVD

PATIENT
  Age: 76 Year
  Sex: Male
  Weight: 79 kg

DRUGS (11)
  1. SORAFENIB [Suspect]
     Indication: NON-SMALL CELL LUNG CANCER
     Dosage: TOTAL DAILY DOSE: 800 MG  UNIT DOSE: 200 MG
     Route: 048
     Dates: start: 20070708, end: 20070719
  2. CISPLATIN [Suspect]
     Indication: NON-SMALL CELL LUNG CANCER
     Route: 042
     Dates: start: 20070703, end: 20070703
  3. GEMCITABINE HCL [Suspect]
     Indication: NON-SMALL CELL LUNG CANCER
     Route: 042
     Dates: start: 20070703, end: 20070703
  4. GEMCITABINE HCL [Suspect]
     Route: 042
     Dates: start: 20070710, end: 20070710
  5. RAMIPRIL [Concomitant]
     Route: 048
  6. NORVASC [Concomitant]
     Route: 048
  7. GLUCOPHAGE [Concomitant]
     Route: 048
  8. DURAGESIC-100 [Concomitant]
     Route: 065
  9. NOVALGIN [Concomitant]
     Dosage: AS USED: 500 MG
     Route: 048
  10. AMITRIPTYLINE HCL [Concomitant]
     Route: 048
  11. ISMO [Concomitant]
     Dosage: TOTAL DAILY DOSE: 120 MG
     Route: 048

REACTIONS (2)
  - DERMATITIS EXFOLIATIVE [None]
  - THROMBOCYTOPENIA [None]
